FAERS Safety Report 14382533 (Version 1)
Quarter: 2018Q1

REPORT INFORMATION
  Report Type: Spontaneous
  Country: US (occurrence: US)
  Receive Date: 20180112
  Receipt Date: 20180112
  Transmission Date: 20180509
  Serious: Yes (Other)
  Sender: FDA-Public Use
  Company Number: US-DUCHESNAY INC.-2040021

PATIENT
  Age: 64 Year
  Sex: Female

DRUGS (1)
  1. OSPHENA [Suspect]
     Active Substance: OSPEMIFENE
     Indication: PRODUCT USED FOR UNKNOWN INDICATION
     Route: 048
     Dates: start: 20170215, end: 20170502

REACTIONS (3)
  - Thrombosis [Unknown]
  - Dyspnoea [Not Recovered/Not Resolved]
  - Peripheral swelling [Recovering/Resolving]

NARRATIVE: CASE EVENT DATE: 20170222
